FAERS Safety Report 5473712-9 (Version None)
Quarter: 2007Q3

REPORT INFORMATION
  Report Type: 
  Country: None (occurrence: None)
  Receive Date: 20070831
  Receipt Date: 20070607
  Transmission Date: 20080115
  Serious: No
  Sender: FDA-Public Use
  Company Number: 242583

PATIENT
  Age: 85 Year
  Sex: Female

DRUGS (3)
  1. LUCENTIS [Suspect]
     Indication: MACULAR DEGENERATION
     Dates: start: 20060725
  2. LUCENTIS [Suspect]
     Indication: MACULAR DEGENERATION
     Dates: start: 20070605
  3. AVASTIN [Suspect]
     Indication: MACULAR DEGENERATION
     Dates: start: 20070301

REACTIONS (1)
  - EYE DISCHARGE [None]
